FAERS Safety Report 26064577 (Version 2)
Quarter: 2025Q4

REPORT INFORMATION
  Report Type: Spontaneous
  Country: US (occurrence: US)
  Receive Date: 20251119
  Receipt Date: 20251222
  Transmission Date: 20260117
  Serious: No
  Sender: SANOFI AVENTIS
  Company Number: US-SA-2025SA343492

PATIENT
  Age: 75 Year
  Sex: Female

DRUGS (1)
  1. DUPIXENT [Suspect]
     Active Substance: DUPILUMAB
     Indication: Asthma
     Dosage: 300 MG, QOW
     Route: 058

REACTIONS (7)
  - Headache [Unknown]
  - Dry eye [Unknown]
  - Injection site reaction [Unknown]
  - Memory impairment [Unknown]
  - Balance disorder [Unknown]
  - Dizziness postural [Unknown]
  - Fall [Unknown]
